FAERS Safety Report 20978208 (Version 2)
Quarter: 2022Q3

REPORT INFORMATION
  Report Type: Spontaneous
  Country: US (occurrence: US)
  Receive Date: 20220618
  Receipt Date: 20220704
  Transmission Date: 20221026
  Serious: No
  Sender: FDA-Public Use
  Company Number: US-SA-SAC20220613000833

PATIENT
  Age: 53 Year
  Sex: Male

DRUGS (2)
  1. DUPIXENT [Suspect]
     Active Substance: DUPILUMAB
     Indication: Dermatitis atopic
     Dosage: UNK, 1X
     Dates: start: 20191004, end: 20191004
  2. DUPIXENT [Suspect]
     Active Substance: DUPILUMAB
     Dosage: 300 MG, QOW
     Route: 058
     Dates: start: 20200714

REACTIONS (2)
  - Eye disorder [Unknown]
  - Dry eye [Unknown]

NARRATIVE: CASE EVENT DATE: 20200701
